FAERS Safety Report 19828512 (Version 5)
Quarter: 2021Q4

REPORT INFORMATION
  Report Type: Report from Study
  Country: MX (occurrence: MX)
  Receive Date: 20210914
  Receipt Date: 20211102
  Transmission Date: 20220303
  Serious: Yes (Hospitalization, Other)
  Sender: FDA-Public Use
  Company Number: NVSC2021MX207643

PATIENT
  Age: 48 Year
  Sex: Female
  Weight: 65 kg

DRUGS (7)
  1. KISQALI [Suspect]
     Active Substance: RIBOCICLIB
     Indication: Breast cancer
     Dosage: 3 DF (200 MG), QD
     Route: 048
     Dates: start: 202106
  2. KISQALI [Suspect]
     Active Substance: RIBOCICLIB
     Dosage: 3 DF (200 MG), QD
     Route: 048
     Dates: start: 202107, end: 202108
  3. KISQALI [Suspect]
     Active Substance: RIBOCICLIB
     Dosage: 3 DF (200 MG), QD
     Route: 048
     Dates: start: 202109
  4. KISQALI [Suspect]
     Active Substance: RIBOCICLIB
     Dosage: 200 MG
     Route: 065
  5. PROBITOR [Concomitant]
     Indication: Breast cancer
     Dosage: 1 MG, QD (STARTED 2 YEAR AGO)
     Route: 048
  6. METFORMIN [Concomitant]
     Active Substance: METFORMIN HYDROCHLORIDE
     Indication: Diabetes mellitus
     Dosage: 850 MG, QD (STARTED 10 YEARS AGO)
     Route: 048
  7. GLYBURIDE [Concomitant]
     Active Substance: GLYBURIDE
     Indication: Diabetes mellitus
     Dosage: 1 DF, QD (STARTED 10 YEAR AGO)
     Route: 048

REACTIONS (11)
  - Pulmonary oedema [Unknown]
  - Breast haemorrhage [Unknown]
  - Monoplegia [Unknown]
  - Breast discolouration [Unknown]
  - Blister [Unknown]
  - Breast ulceration [Unknown]
  - Breast cancer [Unknown]
  - Malignant neoplasm progression [Unknown]
  - Peripheral swelling [Unknown]
  - Blood glucose increased [Unknown]
  - Pain in extremity [Unknown]

NARRATIVE: CASE EVENT DATE: 20210801
